FAERS Safety Report 7584330-0 (Version None)
Quarter: 2011Q2

REPORT INFORMATION
  Report Type: 
  Country: None (occurrence: None)
  Receive Date: 20110630
  Receipt Date: 20110621
  Transmission Date: 20111010
  Serious: Yes (Death, Hospitalization, Other)
  Sender: FDA-Public Use
  Company Number: JP-BAYER-2011-046094

PATIENT
  Age: 81 Year
  Sex: Female
  Weight: 48 kg

DRUGS (7)
  1. NEXAVAR [Suspect]
     Indication: HEPATIC ANGIOSARCOMA
     Dosage: 400 MG, QD
     Route: 048
     Dates: start: 20110413, end: 20110510
  2. FAMOTIDINE [Concomitant]
     Dosage: DAILY DOSE 20 MG
     Route: 048
     Dates: start: 20110409, end: 20110510
  3. HOKUNALIN [Concomitant]
     Dosage: DAILY DOSE 1 MG
     Route: 062
     Dates: start: 20110409, end: 20110521
  4. DIART [Concomitant]
     Dosage: DAILY DOSE 60 MG
     Route: 048
     Dates: start: 20110412, end: 20110510
  5. ALDACTONE [Concomitant]
     Dosage: DAILY DOSE 25 MG
     Route: 048
     Dates: start: 20110414, end: 20110510
  6. MUCOSOLVAN [Concomitant]
     Dosage: DAILY DOSE 45 MG
     Route: 048
     Dates: start: 20110409, end: 20110510
  7. REBAMIPIDE [Concomitant]
     Dosage: DAILY DOSE 300 MG
     Route: 048
     Dates: start: 20110401, end: 20110510

REACTIONS (2)
  - GASTROINTESTINAL HAEMORRHAGE [None]
  - HEPATIC ANGIOSARCOMA [None]
